FAERS Safety Report 6398903-4 (Version None)
Quarter: 2009Q4

REPORT INFORMATION
  Report Type: 
  Country: None (occurrence: None)
  Receive Date: 20091007
  Receipt Date: 20090924
  Transmission Date: 20100525
  Serious: Yes (Hospitalization)
  Sender: FDA-Public Use
  Company Number: 001876

PATIENT
  Sex: Male
  Weight: 64.7 kg

DRUGS (5)
  1. NEUPRO [Suspect]
     Dosage: (4 PATCHES IN THE MORNING TRANSDERMAL)
     Route: 062
  2. SINEMET [Concomitant]
  3. ELIXAMINE JUNIOR [Concomitant]
  4. NOVOMIX 30 /03581901/ [Concomitant]
  5. NOVORAPID [Concomitant]

REACTIONS (3)
  - HYPERGLYCAEMIA [None]
  - HYPOGLYCAEMIA [None]
  - WEIGHT DECREASED [None]
